FAERS Safety Report 23576255 (Version 1)
Quarter: 2024Q1

REPORT INFORMATION
  Report Type: Spontaneous
  Country: US (occurrence: None)
  Receive Date: 20240228
  Receipt Date: 20240228
  Transmission Date: 20240409
  Serious: No
  Sender: FDA-Public Use
  Company Number: None

PATIENT
  Sex: Female

DRUGS (6)
  1. PULMOZYME [Suspect]
     Active Substance: DORNASE ALFA
     Indication: Cystic fibrosis
  2. ALTERA [Concomitant]
  3. CAYSTON [Concomitant]
     Active Substance: AZTREONAM
  4. PARI ALTERA NEBULIZER HAN [Concomitant]
  5. PULMOZYME [Concomitant]
     Active Substance: DORNASE ALFA
  6. TRIKAFTA [Concomitant]

REACTIONS (1)
  - Gastrointestinal disorder [None]
